FAERS Safety Report 9426399 (Version 1)
Quarter: 2013Q3

REPORT INFORMATION
  Report Type: Spontaneous
  Country: US (occurrence: US)
  Receive Date: 20130730
  Receipt Date: 20130730
  Transmission Date: 20140515
  Serious: Yes (Hospitalization)
  Sender: FDA-Public Use
  Company Number: US-BAYER-2013-091139

PATIENT
  Age: 20 Year
  Sex: Female
  Weight: 61.22 kg

DRUGS (2)
  1. YASMIN [Suspect]
  2. RETIN A [Concomitant]
     Route: 061

REACTIONS (1)
  - Deep vein thrombosis [None]
